FAERS Safety Report 14568261 (Version 3)
Quarter: 2018Q2

REPORT INFORMATION
  Report Type: Spontaneous
  Country: DE (occurrence: DE)
  Receive Date: 20180223
  Receipt Date: 20180427
  Transmission Date: 20180711
  Serious: Yes (Other)
  Sender: FDA-Public Use
  Company Number: DE-WEST-WARD PHARMACEUTICALS CORP.-DE-H14001-18-01337

PATIENT
  Age: 4 Year
  Sex: Male

DRUGS (10)
  1. ETOPOSIDE. [Suspect]
     Active Substance: ETOPOSIDE
     Route: 065
  2. VINCRISTINE [Suspect]
     Active Substance: VINCRISTINE
     Indication: CHOROID PLEXUS CARCINOMA
     Route: 062
  3. VINCRISTINE [Suspect]
     Active Substance: VINCRISTINE
     Route: 065
  4. TEMOZOLAMIDE TEVA [Suspect]
     Active Substance: TEMOZOLOMIDE
     Indication: CHOROID PLEXUS CARCINOMA
     Dosage: ()
     Route: 037
  5. CYCLOPHOSPHAMIDE. [Suspect]
     Active Substance: CYCLOPHOSPHAMIDE
     Route: 050
  6. TOPOTECAN [Suspect]
     Active Substance: TOPOTECAN HYDROCHLORIDE
     Indication: CHOROID PLEXUS CARCINOMA
     Dosage: ()
     Route: 037
  7. TEMOZOLAMIDE TEVA [Suspect]
     Active Substance: TEMOZOLOMIDE
     Indication: CHOROID PLEXUS CARCINOMA
     Dosage: ()
     Route: 065
  8. PEGYLATED LIPOSOMAL IRINOTECAN [Suspect]
     Active Substance: IRINOTECAN HYDROCHLORIDE
     Indication: CHOROID PLEXUS CARCINOMA
     Dosage: ()
     Route: 065
  9. CYCLOPHOSPHAMIDE. [Suspect]
     Active Substance: CYCLOPHOSPHAMIDE
     Indication: CHOROID PLEXUS CARCINOMA
     Route: 065
  10. ETOPOSIDE. [Suspect]
     Active Substance: ETOPOSIDE
     Indication: CHOROID PLEXUS CARCINOMA
     Dosage: ()
     Route: 062

REACTIONS (3)
  - Neoplasm progression [Unknown]
  - Genotoxicity [Unknown]
  - Lymphopenia [Unknown]
